FAERS Safety Report 19636799 (Version 1)
Quarter: 2021Q3

REPORT INFORMATION
  Report Type: Spontaneous
  Country: FR (occurrence: FR)
  Receive Date: 20210730
  Receipt Date: 20210730
  Transmission Date: 20211014
  Serious: Yes (Other)
  Sender: FDA-Public Use
  Company Number: FR-ACCORD-233393

PATIENT
  Age: 79 Year
  Sex: Female

DRUGS (3)
  1. IMBRUVICA [Interacting]
     Active Substance: IBRUTINIB
     Indication: COLD TYPE HAEMOLYTIC ANAEMIA
     Route: 048
  2. ESOMEPRAZOLE/ESOMEPRAZOLE MAGNESIUM/ESOMEPRAZOLE SODIUM [Suspect]
     Active Substance: ESOMEPRAZOLE
     Indication: PRODUCT USED FOR UNKNOWN INDICATION
     Route: 048
  3. LEVOTHYROX [Interacting]
     Active Substance: LEVOTHYROXINE
     Indication: THYROID NEOPLASM
     Route: 048

REACTIONS (2)
  - Blood thyroid stimulating hormone increased [Not Recovered/Not Resolved]
  - Drug interaction [Unknown]
